FAERS Safety Report 6420061-8 (Version None)
Quarter: 2009Q4

REPORT INFORMATION
  Report Type: 
  Country: None (occurrence: None)
  Receive Date: 20091029
  Receipt Date: 20091023
  Transmission Date: 20100525
  Serious: Yes (Hospitalization, Other)
  Sender: FDA-Public Use
  Company Number: US-PFIZER INC-2009288612

PATIENT
  Sex: Female

DRUGS (1)
  1. XALATAN [Suspect]

REACTIONS (5)
  - CLOSTRIDIAL INFECTION [None]
  - EYE DISORDER [None]
  - FALL [None]
  - FRACTURE [None]
  - MYOCARDIAL INFARCTION [None]
